FAERS Safety Report 25380539 (Version 2)
Quarter: 2025Q2

REPORT INFORMATION
  Report Type: Spontaneous
  Country: US (occurrence: US)
  Receive Date: 20250530
  Receipt Date: 20250610
  Transmission Date: 20250716
  Serious: No
  Sender: BAUSCH AND LOMB
  Company Number: US-BAUSCHBL-2025BNL009373

PATIENT
  Age: 61 Year
  Sex: Female
  Weight: 61 kg

DRUGS (1)
  1. LATANOPROST [Suspect]
     Active Substance: LATANOPROST
     Indication: Glaucoma
     Dosage: ONE DOP EACH EYE AT NIGHT ONCE
     Route: 047
     Dates: start: 2021

REACTIONS (4)
  - Eye discharge [Recovered/Resolved]
  - Poor quality product administered [Unknown]
  - Liquid product physical issue [Unknown]
  - Product quality issue [Unknown]

NARRATIVE: CASE EVENT DATE: 20250501
